FAERS Safety Report 10907264 (Version 3)
Quarter: 2015Q2

REPORT INFORMATION
  Report Type: Report from Study
  Country: US (occurrence: US)
  Receive Date: 20150312
  Receipt Date: 20150410
  Transmission Date: 20150821
  Serious: Yes (Other)
  Sender: FDA-Public Use
  Company Number: US-BAYER-2015-004273

PATIENT
  Age: 50 Year
  Sex: Male
  Weight: 113.4 kg

DRUGS (7)
  1. STIVARGA [Suspect]
     Active Substance: REGORAFENIB
     Indication: METASTASES TO LYMPH NODES
  2. LIDOCAINE. [Concomitant]
     Active Substance: LIDOCAINE
     Dosage: 5%
  3. STIVARGA [Suspect]
     Active Substance: REGORAFENIB
     Indication: COLON CANCER STAGE IV
     Dosage: DAILY DOSE OF 160 MG FOR 21 DAYS
     Route: 048
  4. STIVARGA [Suspect]
     Active Substance: REGORAFENIB
     Indication: METASTASES TO LIVER
     Dosage: 120 MG, QD
     Route: 048
     Dates: start: 20141230
  5. FENTANYL. [Concomitant]
     Active Substance: FENTANYL
     Dosage: 75MCG
  6. AMOXICILLIN TRIHYDRATE W/CLAVULANTE POTASSIUM [Concomitant]
     Active Substance: AMOXICILLIN\CLAVULANATE POTASSIUM
     Dosage: 875-125
  7. OXYCODONE HYDROCHLORIDE. [Concomitant]
     Active Substance: OXYCODONE HYDROCHLORIDE
     Dosage: 5MG

REACTIONS (13)
  - Hot flush [Not Recovered/Not Resolved]
  - Drug ineffective [None]
  - Palmar-plantar erythrodysaesthesia syndrome [Recovered/Resolved]
  - Peripheral nerve injury [None]
  - Skin fissures [None]
  - Dry skin [None]
  - Intentional product misuse [None]
  - Gait disturbance [None]
  - Hyperhidrosis [None]
  - Adverse drug reaction [None]
  - Colon cancer metastatic [None]
  - Weight decreased [None]
  - Skin exfoliation [None]

NARRATIVE: CASE EVENT DATE: 201501
